FAERS Safety Report 9714560 (Version 2)
Quarter: 2013Q4

REPORT INFORMATION
  Report Type: Report from Study
  Country: CA (occurrence: CA)
  Receive Date: 20131126
  Receipt Date: 20131205
  Transmission Date: 20140711
  Serious: Yes (Other)
  Sender: FDA-Public Use
  Company Number: CA-ABBVIE-13P-028-1171082-00

PATIENT
  Sex: Male

DRUGS (3)
  1. HUMIRA [Suspect]
     Indication: ANKYLOSING SPONDYLITIS
     Route: 058
     Dates: start: 20091010
  2. HUMIRA [Suspect]
     Route: 058
     Dates: start: 20130909
  3. PREVACID [Concomitant]

REACTIONS (2)
  - Hernia [Recovered/Resolved]
  - Hernia [Recovered/Resolved]
